FAERS Safety Report 26191725 (Version 1)
Quarter: 2025Q4

REPORT INFORMATION
  Report Type: Spontaneous
  Country: AE (occurrence: None)
  Receive Date: 20251221
  Receipt Date: 20251221
  Transmission Date: 20260117
  Serious: Yes (Other)
  Sender: FDA-CTU
  Company Number: None

PATIENT
  Age: 77 Year
  Sex: Female
  Weight: 86 kg

DRUGS (2)
  1. MOUNJARO [Suspect]
     Active Substance: TIRZEPATIDE
     Indication: Diabetes mellitus inadequate control
     Dosage: 15 MG WEEKLY SUBCUTANEOUS
     Route: 058
     Dates: start: 20200101, end: 20251020
  2. MOUNJARO [Suspect]
     Active Substance: TIRZEPATIDE
     Indication: Glycosylated haemoglobin increased

REACTIONS (6)
  - Drug eruption [None]
  - Rash pruritic [None]
  - Rash vesicular [None]
  - Purpura [None]
  - Eczema [None]
  - Rash [None]

NARRATIVE: CASE EVENT DATE: 20251001
